FAERS Safety Report 4281153-5 (Version None)
Quarter: 2004Q1

REPORT INFORMATION
  Report Type: 
  Country: None (occurrence: None)
  Receive Date: 20040102
  Receipt Date: 20030627
  Transmission Date: 20041129
  Serious: Yes (Other)
  Sender: FDA-Public Use
  Company Number: 03-5147-1

PATIENT
  Sex: Female

DRUGS (4)
  1. AVAGARD [Suspect]
     Indication: ANTI-INFECTIVE THERAPY
     Dosage: 6ML AS NEEDED 060, 1 APPLICATION
  2. PACEMAKER, 2% CHG VET SPRAY [Concomitant]
  3. AMIODARANE [Concomitant]
  4. LOTREL [Concomitant]

REACTIONS (1)
  - ANAPHYLACTIC REACTION [None]
